FAERS Safety Report 21158191 (Version 1)
Quarter: 2022Q3

REPORT INFORMATION
  Report Type: Other
  Country: CN (occurrence: CN)
  Receive Date: 20220801
  Receipt Date: 20220801
  Transmission Date: 20221027
  Serious: Yes (Hospitalization)
  Sender: FDA-Public Use
  Company Number: CN-GE HEALTHCARE-2022CSU005200

PATIENT
  Age: 72 Year
  Sex: Female
  Weight: 75 kg

DRUGS (6)
  1. OMNIPAQUE [Suspect]
     Active Substance: IOHEXOL
     Indication: Angiocardiogram
     Dosage: 50 ML, SINGLE
     Route: 013
     Dates: start: 20220715, end: 20220715
  2. OMNIPAQUE [Suspect]
     Active Substance: IOHEXOL
     Indication: Arteriosclerosis coronary artery
  3. OMNIPAQUE [Suspect]
     Active Substance: IOHEXOL
     Indication: Acute coronary syndrome
  4. OMNIPAQUE [Suspect]
     Active Substance: IOHEXOL
     Indication: Hypertension
  5. OMNIPAQUE [Suspect]
     Active Substance: IOHEXOL
     Indication: Skin test
     Dosage: UNK UNK, SINGLE
     Route: 023
  6. DEXAMETHASONE [Concomitant]
     Active Substance: DEXAMETHASONE
     Indication: Allergy prophylaxis
     Dosage: UNK
     Dates: start: 20220715, end: 20220715

REACTIONS (4)
  - Dyspnoea [Recovered/Resolved]
  - Lip oedema [Recovered/Resolved]
  - Face oedema [Recovered/Resolved]
  - Off label use [Recovered/Resolved]

NARRATIVE: CASE EVENT DATE: 20220715
